FAERS Safety Report 4836587-4 (Version None)
Quarter: 2005Q4

REPORT INFORMATION
  Report Type: 
  Country: None (occurrence: None)
  Receive Date: 20051121
  Receipt Date: 20051107
  Transmission Date: 20060501
  Serious: Yes (Other)
  Sender: FDA-Public Use
  Company Number: 2005153881

PATIENT
  Age: 80 Year
  Sex: Female
  Weight: 74.8435 kg

DRUGS (2)
  1. CLINDAMYCIN HYDROCHLORIDE [Suspect]
     Indication: DIABETIC FOOT INFECTION
     Dates: start: 20050901
  2. GLUCOPHAGE [Concomitant]

REACTIONS (2)
  - COLITIS [None]
  - WEIGHT DECREASED [None]
